FAERS Safety Report 5725873-1 (Version None)
Quarter: 2008Q2

REPORT INFORMATION
  Report Type: 
  Country: None (occurrence: None)
  Receive Date: 20080430
  Receipt Date: 20080417
  Transmission Date: 20081010
  Serious: Yes (Other)
  Sender: FDA-Public Use
  Company Number: 2008009811

PATIENT
  Age: 79 Year
  Sex: Female
  Weight: 65.7716 kg

DRUGS (3)
  1. VISINE II EYE DROPS [Suspect]
     Indication: DRY EYE
     Dosage: 1-2 DROPS IN EACH EYE. 2X PER DAY FOR 2-3 DAYS., OPHTHALMIC
     Route: 047
  2. DIOVAN [Concomitant]
  3. URINARY ANTISPASMODICS (URINARY ANTISPASMODICS) [Concomitant]

REACTIONS (1)
  - EYE IRRITATION [None]
